FAERS Safety Report 12539652 (Version 1)
Quarter: 2016Q3

REPORT INFORMATION
  Report Type: Spontaneous
  Country: GB (occurrence: GB)
  Receive Date: 20160708
  Receipt Date: 20160708
  Transmission Date: 20161109
  Serious: Yes (Other)
  Sender: FDA-Public Use
  Company Number: GB-AUROBINDO-AUR-APL-2016-08560

PATIENT
  Age: 42 Year
  Sex: Female

DRUGS (11)
  1. PAXIL [Suspect]
     Active Substance: PAROXETINE HYDROCHLORIDE
     Indication: DEPRESSION
     Dosage: 20 MG, QD
     Route: 048
     Dates: start: 20000911, end: 20010911
  2. PAROXETINE TABLET [Suspect]
     Active Substance: PAROXETINE
     Indication: DEPRESSION
     Dosage: UNK
     Route: 065
     Dates: start: 20121231, end: 20160416
  3. PAROXETINE TABLET [Suspect]
     Active Substance: PAROXETINE
     Dosage: 20 MG, QD
     Dates: start: 20121231, end: 20160314
  4. SEROXAT [Suspect]
     Active Substance: PAROXETINE HYDROCHLORIDE
     Dosage: UNK
     Route: 065
     Dates: start: 20041018
  5. ESTRADERM [Concomitant]
     Active Substance: ESTRADIOL
     Indication: PRODUCT USED FOR UNKNOWN INDICATION
     Dosage: 50 ?G, UNK
     Route: 065
  6. HALOPERIDOL. [Concomitant]
     Active Substance: HALOPERIDOL
     Indication: PRODUCT USED FOR UNKNOWN INDICATION
     Route: 065
  7. PAXIL [Suspect]
     Active Substance: PAROXETINE HYDROCHLORIDE
     Indication: PRODUCT USED FOR UNKNOWN INDICATION
     Dosage: UNK
     Route: 065
     Dates: start: 20010911, end: 20021107
  8. THYROXINE [Concomitant]
     Active Substance: LEVOTHYROXINE
     Indication: PRODUCT USED FOR UNKNOWN INDICATION
     Route: 065
  9. SEROXAT [Suspect]
     Active Substance: PAROXETINE HYDROCHLORIDE
     Indication: MIGRAINE
     Dosage: UNK
     Route: 065
     Dates: start: 20060602
  10. PAROXETINE TABLET [Suspect]
     Active Substance: PAROXETINE
     Dosage: 30 MG, QD
     Route: 065
     Dates: start: 20150815, end: 20151113
  11. SEROXAT [Suspect]
     Active Substance: PAROXETINE HYDROCHLORIDE
     Indication: DEPRESSION
     Dosage: 20 MG, 1D
     Route: 065
     Dates: start: 19960902, end: 20110201

REACTIONS (22)
  - Facial paralysis [Unknown]
  - Headache [Unknown]
  - Dizziness [Unknown]
  - Memory impairment [Unknown]
  - Loss of consciousness [Unknown]
  - Mood altered [Unknown]
  - Nausea [Unknown]
  - Anxiety [Unknown]
  - Dysarthria [Unknown]
  - Drug withdrawal syndrome [Unknown]
  - Anger [Unknown]
  - Confusional state [Unknown]
  - Language disorder [Unknown]
  - Migraine [Unknown]
  - Emotional disorder [Unknown]
  - Paraesthesia [Unknown]
  - Suicidal ideation [Unknown]
  - Dyspraxia [Unknown]
  - Apraxia [Unknown]
  - Dissociation [Unknown]
  - Disturbance in attention [Unknown]
  - Lethargy [Unknown]

NARRATIVE: CASE EVENT DATE: 19980217
